FAERS Safety Report 9909138 (Version 2)
Quarter: 2014Q1

REPORT INFORMATION
  Report Type: Spontaneous
  Country: US (occurrence: None)
  Receive Date: 20140212
  Receipt Date: 20140320
  Transmission Date: 20141002
  Serious: Yes (Death, Hospitalization)
  Sender: FDA-Public Use
  Company Number: UTC-044389

PATIENT
  Age: 55 Year
  Sex: Female
  Weight: 113.6 kg

DRUGS (2)
  1. REMODULIN [Suspect]
     Indication: COR PULMONALE CHRONIC
     Dosage: (0.05 UG/KG, 1 IN 1 MIN)
     Route: 041
  2. WARFARIN [Concomitant]

REACTIONS (3)
  - Death [None]
  - Pneumonia [None]
  - Respiratory distress [None]
